FAERS Safety Report 18165610 (Version 4)
Quarter: 2021Q2

REPORT INFORMATION
  Report Type: Spontaneous
  Country: US (occurrence: US)
  Receive Date: 20200819
  Receipt Date: 20210623
  Transmission Date: 20210717
  Serious: Yes (Other)
  Sender: FDA-Public Use
  Company Number: US-SA-2020SA213627

PATIENT
  Age: 78 Year
  Sex: Male

DRUGS (5)
  1. XTANDI [Interacting]
     Active Substance: ENZALUTAMIDE
     Indication: METASTASES TO BONE
     Dosage: 160 MG, QD
     Route: 048
  2. XTANDI [Interacting]
     Active Substance: ENZALUTAMIDE
     Dosage: 40 MG, QD
     Route: 048
  3. LISINOPRIL. [Suspect]
     Active Substance: LISINOPRIL
     Indication: PRODUCT USED FOR UNKNOWN INDICATION
     Dosage: UNK
  4. PLAVIX [Suspect]
     Active Substance: CLOPIDOGREL BISULFATE
     Indication: PRODUCT USED FOR UNKNOWN INDICATION
     Dosage: 75 MG
     Route: 065
  5. XTANDI [Interacting]
     Active Substance: ENZALUTAMIDE
     Indication: PROSTATE CANCER STAGE IV
     Dosage: 80 MG, QD
     Route: 048
     Dates: start: 20190715

REACTIONS (4)
  - Diabetes mellitus inadequate control [Recovered/Resolved]
  - Drug interaction [Unknown]
  - Underdose [Unknown]
  - Product distribution issue [Unknown]

NARRATIVE: CASE EVENT DATE: 20200715
